FAERS Safety Report 9227129 (Version 1)
Quarter: 2013Q2

REPORT INFORMATION
  Report Type: Spontaneous
  Country: DE (occurrence: DE)
  Receive Date: 20130412
  Receipt Date: 20130412
  Transmission Date: 20140414
  Serious: Yes (Death, Hospitalization, Other)
  Sender: FDA-Public Use
  Company Number: DE-JNJFOC-20130114765

PATIENT
  Age: 82 Year
  Sex: Male
  Weight: 32.66 kg

DRUGS (8)
  1. XARELTO [Suspect]
     Indication: CEREBROVASCULAR ACCIDENT PROPHYLAXIS
     Route: 048
     Dates: start: 20120810, end: 20121226
  2. XARELTO [Suspect]
     Indication: ATRIAL FIBRILLATION
     Route: 048
     Dates: start: 20120810, end: 20121226
  3. RAMIPLUS STADA [Concomitant]
     Route: 065
  4. RAMIPRIL [Concomitant]
     Route: 065
     Dates: start: 20120810
  5. SIMVASTATIN [Concomitant]
     Route: 065
  6. GINGIUM [Concomitant]
     Route: 065
     Dates: start: 20120810
  7. PANTOPRAZOLE [Concomitant]
     Route: 065
     Dates: start: 20120810
  8. VOLTAREN [Concomitant]
     Route: 065
     Dates: start: 20121018, end: 20121028

REACTIONS (13)
  - Cerebral haemorrhage [Fatal]
  - Basal ganglia haemorrhage [Fatal]
  - Hemiparesis [Unknown]
  - Hemiplegia [Unknown]
  - Coma [Unknown]
  - Vomiting [Unknown]
  - Fall [Unknown]
  - Aphasia [Unknown]
  - Pneumonia [Unknown]
  - Jaundice [Unknown]
  - Renal failure [Unknown]
  - Pyrexia [Unknown]
  - Posture abnormal [Unknown]
